FAERS Safety Report 4915990-8 (Version None)
Quarter: 2006Q1

REPORT INFORMATION
  Report Type: 
  Country: None (occurrence: None)
  Receive Date: 20060214
  Receipt Date: 20060127
  Transmission Date: 20060701
  Serious: Yes (Other)
  Sender: FDA-Public Use
  Company Number: US200601005277

PATIENT
  Age: 15 Year
  Sex: Male
  Weight: 63.5 kg

DRUGS (3)
  1. STRATTERA [Suspect]
     Dosage: 40 MG, EACH MORNING,
     Dates: start: 20060127, end: 20060127
  2. NOVOLOG [Concomitant]
  3. LANTUS [Concomitant]

REACTIONS (2)
  - BLOOD GLUCOSE DECREASED [None]
  - LOSS OF CONSCIOUSNESS [None]
